FAERS Safety Report 22945501 (Version 2)
Quarter: 2024Q2

REPORT INFORMATION
  Report Type: Spontaneous
  Country: US (occurrence: US)
  Receive Date: 20230914
  Receipt Date: 20240409
  Transmission Date: 20240716
  Serious: Yes (Hospitalization)
  Sender: FDA-Public Use
  Company Number: US-PFIZER INC-PV202300154391

PATIENT
  Age: 72 Year
  Sex: Male

DRUGS (1)
  1. XELJANZ XR [Suspect]
     Active Substance: TOFACITINIB CITRATE
     Dosage: UNK

REACTIONS (4)
  - Heart valve replacement [Unknown]
  - Cardiac pacemaker replacement [Unknown]
  - Haemoglobin decreased [Unknown]
  - Hair growth rate abnormal [Unknown]

NARRATIVE: CASE EVENT DATE: 20230601
